FAERS Safety Report 4946569-X (Version None)
Quarter: 2006Q1

REPORT INFORMATION
  Report Type: 
  Country: None (occurrence: None)
  Receive Date: 20060317
  Receipt Date: 20060123
  Transmission Date: 20060701
  Serious: Yes (Other)
  Sender: FDA-Public Use
  Company Number: GB-GLAXOSMITHKLINE-B0407534A

PATIENT
  Age: 45 Year
  Sex: Female

DRUGS (3)
  1. ZYBAN [Suspect]
     Indication: SMOKING CESSATION THERAPY
     Route: 048
     Dates: start: 20060105, end: 20060119
  2. RAMIPRIL [Concomitant]
     Route: 065
  3. SERETIDE [Concomitant]
     Route: 055

REACTIONS (8)
  - ABNORMAL SENSATION IN EYE [None]
  - CIRCULATORY COLLAPSE [None]
  - DISABILITY [None]
  - DISORIENTATION [None]
  - HEADACHE [None]
  - HYPERVIGILANCE [None]
  - MYDRIASIS [None]
  - SENSORY DISTURBANCE [None]
